FAERS Safety Report 7641810-7 (Version None)
Quarter: 2011Q3

REPORT INFORMATION
  Report Type: 
  Country: None (occurrence: None)
  Receive Date: 20110727
  Receipt Date: 20110727
  Transmission Date: 20111222
  Serious: Yes (Other)
  Sender: FDA-Public Use
  Company Number: None

PATIENT
  Age: 61 Year
  Sex: Male

DRUGS (1)
  1. COPAXONE [Suspect]
     Dosage: 20MG DAILY SQ
     Route: 058
     Dates: start: 20110120, end: 20110707

REACTIONS (4)
  - INJECTION SITE HAEMORRHAGE [None]
  - PRURITUS [None]
  - BLISTER [None]
  - FEELING ABNORMAL [None]
